FAERS Safety Report 11857531 (Version 1)
Quarter: 2015Q4

REPORT INFORMATION
  Report Type: Report from Study
  Country: US (occurrence: US)
  Receive Date: 20151221
  Receipt Date: 20151221
  Transmission Date: 20160305
  Serious: Yes (Other)
  Sender: FDA-Public Use
  Company Number: US-JNJFOC-20151212957

PATIENT
  Age: 69 Year
  Sex: Male

DRUGS (1)
  1. IMBRUVICA [Suspect]
     Active Substance: IBRUTINIB
     Indication: CHRONIC LYMPHOCYTIC LEUKAEMIA
     Route: 048
     Dates: start: 20150706, end: 20151202

REACTIONS (7)
  - Glomerular filtration rate decreased [Recovering/Resolving]
  - Haemoptysis [Recovering/Resolving]
  - Cardiac failure [Recovering/Resolving]
  - Urinary bladder haemorrhage [Recovering/Resolving]
  - Pulmonary haemorrhage [Recovering/Resolving]
  - Atrial fibrillation [Recovering/Resolving]
  - Mucosal haemorrhage [Recovering/Resolving]

NARRATIVE: CASE EVENT DATE: 2015
